FAERS Safety Report 5225298-1 (Version None)
Quarter: 2007Q1

REPORT INFORMATION
  Report Type: 
  Country: None (occurrence: None)
  Receive Date: 20070131
  Receipt Date: 20070122
  Transmission Date: 20070707
  Serious: Yes (Hospitalization)
  Sender: FDA-Public Use
  Company Number: 2007CG00149

PATIENT
  Age: 49 Year
  Sex: Female

DRUGS (4)
  1. ZOMIGORO [Suspect]
     Indication: MIGRAINE WITH AURA
     Route: 048
     Dates: end: 20060222
  2. IBUPROFEN [Suspect]
     Indication: MIGRAINE WITH AURA
     Dosage: FOUR TO SIX TABLETS PER DAY
     Route: 048
     Dates: end: 20060222
  3. AVLOCARDYL [Concomitant]
     Indication: MIGRAINE WITH AURA
     Route: 048
  4. SIBELIUM [Concomitant]
     Indication: MIGRAINE WITH AURA
     Route: 048
     Dates: end: 20060222

REACTIONS (3)
  - DRUG ABUSER [None]
  - DRUG WITHDRAWAL HEADACHE [None]
  - DRUG WITHDRAWAL SYNDROME [None]
